FAERS Safety Report 15426081 (Version 5)
Quarter: 2018Q4

REPORT INFORMATION
  Report Type: Spontaneous
  Country: AT (occurrence: AT)
  Receive Date: 20180925
  Receipt Date: 20181226
  Transmission Date: 20190204
  Serious: Yes (Life-Threatening)
  Sender: FDA-Public Use
  Company Number: AT-PFIZER INC-2018357521

PATIENT
  Age: 61 Year
  Sex: Female
  Weight: 153 kg

DRUGS (2)
  1. SOLU-MEDROL [Suspect]
     Active Substance: METHYLPREDNISOLONE SODIUM SUCCINATE
     Indication: ALLERGY TO ARTHROPOD STING
     Dosage: 1000 MG, SINGLE (BOLUS)
     Route: 042
     Dates: start: 20180903, end: 20180903
  2. DIBONDRIN [Concomitant]
     Active Substance: DIPHENHYDRAMINE HYDROCHLORIDE
     Dosage: UNK, SINGLE

REACTIONS (3)
  - Drug ineffective [Unknown]
  - Allergy to arthropod sting [Recovered/Resolved]
  - Condition aggravated [Recovered/Resolved]

NARRATIVE: CASE EVENT DATE: 20180903
